FAERS Safety Report 13091490 (Version 1)
Quarter: 2017Q1

REPORT INFORMATION
  Report Type: Spontaneous
  Country: FR (occurrence: FR)
  Receive Date: 20170106
  Receipt Date: 20170106
  Transmission Date: 20170428
  Serious: Yes (Hospitalization)
  Sender: FDA-Public Use
  Company Number: FR-ROCHE-1875222

PATIENT
  Age: 80 Year
  Sex: Female

DRUGS (23)
  1. METALYSE [Suspect]
     Active Substance: TENECTEPLASE
     Route: 048
     Dates: start: 20150126, end: 20150128
  2. RISORDAN [Suspect]
     Active Substance: ISOSORBIDE DINITRATE
     Indication: STENT PLACEMENT
     Dosage: 10 MG/10 ML
     Route: 042
     Dates: start: 20160121
  3. ASPEGIC [Concomitant]
     Active Substance: ASPIRIN DL-LYSINE
     Indication: PRODUCT USED FOR UNKNOWN INDICATION
     Route: 065
     Dates: end: 20150120
  4. DIFFU K [Concomitant]
     Active Substance: POTASSIUM CHLORIDE
     Indication: PRODUCT USED FOR UNKNOWN INDICATION
     Route: 065
     Dates: end: 20150120
  5. METALYSE [Suspect]
     Active Substance: TENECTEPLASE
     Indication: STENT PLACEMENT
     Route: 042
     Dates: start: 20150121
  6. BISOPROLOL [Concomitant]
     Active Substance: BISOPROLOL
     Indication: PRODUCT USED FOR UNKNOWN INDICATION
     Route: 065
     Dates: end: 20150120
  7. PLAVIX [Concomitant]
     Active Substance: CLOPIDOGREL BISULFATE
     Indication: PRODUCT USED FOR UNKNOWN INDICATION
     Route: 065
     Dates: start: 20150120
  8. ATORVASTATIN [Concomitant]
     Active Substance: ATORVASTATIN
     Route: 065
     Dates: end: 20150228
  9. VISIPAQUE [Suspect]
     Active Substance: IODIXANOL
     Indication: ARTERIOGRAM CORONARY
     Dosage: 150 MG I/ML
     Route: 042
     Dates: start: 20150121
  10. PANTOPRAZOLE [Concomitant]
     Active Substance: PANTOPRAZOLE SODIUM
  11. LIDOCAINE. [Concomitant]
     Active Substance: LIDOCAINE
     Indication: PRODUCT USED FOR UNKNOWN INDICATION
     Route: 058
     Dates: start: 20150121
  12. PERFALGAN [Concomitant]
     Active Substance: ACETAMINOPHEN
     Route: 042
     Dates: start: 20150127, end: 20150228
  13. TIORFAN [Suspect]
     Active Substance: RACECADOTRIL
     Route: 048
     Dates: start: 20150126, end: 20150128
  14. LOVENOX [Suspect]
     Active Substance: ENOXAPARIN SODIUM
     Indication: STENT PLACEMENT
     Dosage: 0.3 (30 000 UI ANTI-XA/3 ML)
     Route: 002
     Dates: start: 20150121
  15. MORPHINE [Suspect]
     Active Substance: MORPHINE
     Indication: STENT PLACEMENT
     Route: 042
  16. ASPEGIC [Concomitant]
     Active Substance: ASPIRIN DL-LYSINE
     Route: 065
     Dates: start: 20150121
  17. TIORFAN [Suspect]
     Active Substance: RACECADOTRIL
     Indication: DIARRHOEA
     Route: 048
     Dates: end: 20150120
  18. BISOPROLOL [Concomitant]
     Active Substance: BISOPROLOL
     Route: 065
     Dates: start: 20150127
  19. PLAVIX [Concomitant]
     Active Substance: CLOPIDOGREL BISULFATE
     Route: 065
     Dates: start: 20150121, end: 20150128
  20. ARIXTRA [Suspect]
     Active Substance: FONDAPARINUX SODIUM
     Indication: STENT PLACEMENT
     Dosage: 2.5 MG/0.5 ML
     Route: 058
     Dates: start: 20150121, end: 20150126
  21. PERFALGAN [Concomitant]
     Active Substance: ACETAMINOPHEN
     Indication: PRODUCT USED FOR UNKNOWN INDICATION
     Route: 042
     Dates: end: 20150120
  22. ATORVASTATIN [Concomitant]
     Active Substance: ATORVASTATIN
     Indication: PRODUCT USED FOR UNKNOWN INDICATION
     Route: 065
     Dates: end: 20150120
  23. PREDNISOLONE. [Concomitant]
     Active Substance: PREDNISOLONE
     Indication: PRODUCT USED FOR UNKNOWN INDICATION
     Route: 065
     Dates: start: 20150114, end: 20150121

REACTIONS (1)
  - Acute generalised exanthematous pustulosis [Recovered/Resolved]

NARRATIVE: CASE EVENT DATE: 20150128
